FAERS Safety Report 10227994 (Version 2)
Quarter: 2014Q2

REPORT INFORMATION
  Report Type: Spontaneous
  Country: US (occurrence: US)
  Receive Date: 20140610
  Receipt Date: 20140630
  Transmission Date: 20141212
  Serious: No
  Sender: FDA-Public Use
  Company Number: US-ROXANE LABORATORIES, INC.-2014-RO-00856RO

PATIENT
  Sex: Female
  Weight: 57 kg

DRUGS (1)
  1. METHOTREXATE [Suspect]
     Indication: RHEUMATOID ARTHRITIS
     Route: 048
     Dates: start: 2013, end: 201404

REACTIONS (2)
  - Drug ineffective [Unknown]
  - Product quality issue [Unknown]
